FAERS Safety Report 8354930-9 (Version None)
Quarter: 2012Q2

REPORT INFORMATION
  Report Type: 
  Country: None (occurrence: None)
  Receive Date: 20120511
  Receipt Date: 20120430
  Transmission Date: 20120825
  Serious: Yes (Other)
  Sender: FDA-Public Use
  Company Number: US-BRISTOL-MYERS SQUIBB COMPANY-16586513

PATIENT
  Age: 74 Year
  Sex: Male

DRUGS (5)
  1. CISPLATIN [Suspect]
     Indication: SQUAMOUS CELL CARCINOMA
     Dosage: 2 MG IN TOTAL
  2. CARBOPLATIN [Suspect]
     Indication: SQUAMOUS CELL CARCINOMA
  3. GLYBURIDE [Concomitant]
     Indication: DIABETES MELLITUS
  4. METFORMIN HCL [Concomitant]
     Indication: DIABETES MELLITUS
  5. PACLITAXEL [Suspect]
     Indication: MESOTHELIOMA
     Dosage: 4 CYCLES

REACTIONS (4)
  - TOXIC NEUROPATHY [None]
  - AREFLEXIA [None]
  - BALANCE DISORDER [None]
  - MOTOR DYSFUNCTION [None]
